FAERS Safety Report 11966164 (Version 1)
Quarter: 2016Q1

REPORT INFORMATION
  Report Type: Spontaneous
  Country: US (occurrence: US)
  Receive Date: 20160127
  Receipt Date: 20160127
  Transmission Date: 20160526
  Serious: No
  Sender: FDA-Public Use
  Company Number: US-PFIZER INC-2015475718

PATIENT
  Age: 61 Year
  Sex: Male
  Weight: 109 kg

DRUGS (4)
  1. MULTAQ [Concomitant]
     Active Substance: DRONEDARONE
     Indication: ATRIAL FIBRILLATION
     Dosage: 400 MG, 2X/DAY, WITH MORNING AND EVENING MEALS
     Route: 048
     Dates: start: 20151214, end: 20151224
  2. MULTAQ [Concomitant]
     Active Substance: DRONEDARONE
     Indication: ATRIAL FLUTTER
  3. TIKOSYN [Suspect]
     Active Substance: DOFETILIDE
     Indication: ATRIAL FLUTTER
     Dosage: UNK
     Dates: end: 2013
  4. TIKOSYN [Suspect]
     Active Substance: DOFETILIDE
     Dosage: 500 UG, 2X/DAY
     Route: 048
     Dates: start: 20151226

REACTIONS (2)
  - Drug ineffective [Unknown]
  - Atrial flutter [Unknown]
